FAERS Safety Report 23769612 (Version 2)
Quarter: 2024Q2

REPORT INFORMATION
  Report Type: Spontaneous
  Country: US (occurrence: US)
  Receive Date: 20240422
  Receipt Date: 20240524
  Transmission Date: 20240715
  Serious: No
  Sender: FDA-Public Use
  Company Number: US-BAYER-2024A059546

PATIENT
  Sex: Female

DRUGS (1)
  1. ALEVE PM [Suspect]
     Active Substance: DIPHENHYDRAMINE HYDROCHLORIDE\NAPROXEN SODIUM
     Dosage: UNK
     Route: 048

REACTIONS (4)
  - Feeling abnormal [Recovered/Resolved]
  - Hangover [Recovered/Resolved]
  - Product use complaint [Recovered/Resolved]
  - Malaise [None]
